FAERS Safety Report 19677933 (Version 1)
Quarter: 2021Q3

REPORT INFORMATION
  Report Type: Spontaneous
  Country: US (occurrence: US)
  Receive Date: 20210810
  Receipt Date: 20210810
  Transmission Date: 20211014
  Serious: Yes (Other)
  Sender: FDA-Public Use
  Company Number: US-DRREDDYS-LIT/USA/21/0138640

PATIENT
  Age: 63 Year
  Sex: Male

DRUGS (6)
  1. TOPOTECAN HYDROCHLORIDE FOR INJECTION [Suspect]
     Active Substance: TOPOTECAN HYDROCHLORIDE
     Indication: MYXOFIBROSARCOMA
     Dosage: 7 CYCLES
  2. GEMCITABINE. [Suspect]
     Active Substance: GEMCITABINE
     Indication: MYXOFIBROSARCOMA
     Dosage: 2 CYCLES
  3. DOCETAXEL. [Suspect]
     Active Substance: DOCETAXEL
     Indication: MYXOFIBROSARCOMA
     Dosage: 2 CYCLES
  4. PACLITAXEL. [Suspect]
     Active Substance: PACLITAXEL
     Indication: MYXOFIBROSARCOMA
     Dosage: 2 CYCLES
  5. PAZOPANIB [Suspect]
     Active Substance: PAZOPANIB
     Indication: MYXOFIBROSARCOMA
     Dosage: 7 CYCLES
  6. TRABECTEDIN [Suspect]
     Active Substance: TRABECTEDIN
     Indication: MYXOFIBROSARCOMA
     Dosage: 2 CYCLES

REACTIONS (1)
  - Drug ineffective [Unknown]
